FAERS Safety Report 23511691 (Version 1)
Quarter: 2024Q1

REPORT INFORMATION
  Report Type: Spontaneous
  Country: VN (occurrence: VN)
  Receive Date: 20240212
  Receipt Date: 20240212
  Transmission Date: 20240409
  Serious: Yes (Hospitalization)
  Sender: FDA-Public Use
  Company Number: VN-JNJFOC-20240206803

PATIENT

DRUGS (2)
  1. ACETAMINOPHEN [Suspect]
     Active Substance: ACETAMINOPHEN
     Indication: Product used for unknown indication
     Route: 048
  2. ACETAMINOPHEN [Suspect]
     Active Substance: ACETAMINOPHEN
     Route: 048

REACTIONS (23)
  - Tachypnoea [Unknown]
  - Heart rate increased [Unknown]
  - Altered state of consciousness [Unknown]
  - Diarrhoea [Unknown]
  - Headache [Unknown]
  - Hypokalaemia [Unknown]
  - Leukocytosis [Unknown]
  - Anaemia [Unknown]
  - Toxicity to various agents [Unknown]
  - Liver injury [Unknown]
  - Nausea [Unknown]
  - Vomiting [Unknown]
  - Jaundice [Unknown]
  - Hypotension [Unknown]
  - Hepatotoxicity [Unknown]
  - Acute hepatic failure [Unknown]
  - Metabolic acidosis [Unknown]
  - Blood lactic acid increased [Unknown]
  - Abdominal pain [Unknown]
  - Hypoglycaemia [Unknown]
  - Renal failure [Unknown]
  - Thrombocytopenia [Unknown]
  - Prothrombin time prolonged [Unknown]
